FAERS Safety Report 4481082-8 (Version None)
Quarter: 2004Q4

REPORT INFORMATION
  Report Type: 
  Country: None (occurrence: None)
  Receive Date: 20040923
  Receipt Date: 20040601
  Transmission Date: 20050328
  Serious: No
  Sender: FDA-Public Use
  Company Number: USA031255207

PATIENT
  Age: 68 Year
  Sex: Female
  Weight: 59 kg

DRUGS (1)
  1. FORTEO [Suspect]
     Indication: OSTEOPOROSIS
     Dosage: 20 UG EVERY OTHER DAY
     Dates: start: 20031208

REACTIONS (5)
  - APHONIA [None]
  - ASTHENIA [None]
  - LARYNGITIS [None]
  - PAIN EXACERBATED [None]
  - PAIN IN EXTREMITY [None]
